FAERS Safety Report 7948908-4 (Version None)
Quarter: 2011Q4

REPORT INFORMATION
  Report Type: 
  Country: None (occurrence: None)
  Receive Date: 20111130
  Receipt Date: 20111128
  Transmission Date: 20120403
  Serious: No
  Sender: FDA-Public Use
  Company Number: PHEH2011US010267

PATIENT
  Sex: Female

DRUGS (6)
  1. CELEBREX [Concomitant]
  2. TASIGNA [Suspect]
     Dosage: 300 MG, BID
     Route: 048
  3. VESICARE [Concomitant]
  4. ONDANSETRON [Concomitant]
  5. METHADONE HYDROCHLORIDE [Concomitant]
  6. HYDROCODONE BITARTRATE AND ACETAMINOPHEN [Concomitant]

REACTIONS (2)
  - NAUSEA [None]
  - ALOPECIA [None]
